FAERS Safety Report 12405870 (Version 3)
Quarter: 2016Q2

REPORT INFORMATION
  Report Type: Report from Study
  Country: DE (occurrence: DE)
  Receive Date: 20160526
  Receipt Date: 20160622
  Transmission Date: 20160815
  Serious: Yes (Hospitalization)
  Sender: FDA-Public Use
  Company Number: DE-ROCHE-1762210

PATIENT
  Age: 77 Year
  Sex: Male
  Weight: 92 kg

DRUGS (22)
  1. NAB-PACLITAXEL [Suspect]
     Active Substance: PACLITAXEL
     Indication: NON-SMALL CELL LUNG CANCER
     Dosage: DATE OF MOST RECENT DOSE PRIOR TO EVENT ONSET: 10/MAY/2016 (AT START TIME 12:50) AT 205 MG.
     Route: 042
     Dates: start: 20160419
  2. PANTOPRAZOL [Concomitant]
     Active Substance: PANTOPRAZOLE SODIUM
     Indication: PROPHYLAXIS
  3. ONDANSETRON [Concomitant]
     Active Substance: ONDANSETRON
     Indication: PROPHYLAXIS
     Route: 065
     Dates: start: 20160419
  4. RATIOGRASTIM [Concomitant]
     Active Substance: FILGRASTIM
     Route: 065
     Dates: start: 20160506, end: 20160506
  5. CLEXANE [Concomitant]
     Active Substance: ENOXAPARIN SODIUM
     Indication: PROPHYLAXIS
     Route: 065
     Dates: start: 20160517, end: 20160517
  6. ATEZOLIZUMAB [Suspect]
     Active Substance: ATEZOLIZUMAB
     Indication: NON-SMALL CELL LUNG CANCER
     Dosage: DATE OF MOST RECENT DOSE PRIOR TO EVENT ONSET: 10/MAY/2016 (AT START TIME 11:55) AT 1200 MG.
     Route: 042
     Dates: start: 20160419
  7. VERGENTAN [Concomitant]
     Indication: PROPHYLAXIS
     Route: 065
     Dates: start: 20160426, end: 20160426
  8. RATIOGRASTIM [Concomitant]
     Active Substance: FILGRASTIM
     Route: 065
     Dates: start: 20160517, end: 20160517
  9. METFORMIN [Concomitant]
     Active Substance: METFORMIN HYDROCHLORIDE
     Indication: DIABETES MELLITUS
     Route: 065
     Dates: start: 20160426
  10. SIMVASTATIN. [Concomitant]
     Active Substance: SIMVASTATIN
     Indication: DIABETES MELLITUS
  11. STARLIX [Concomitant]
     Active Substance: NATEGLINIDE
     Indication: DIABETES MELLITUS
  12. PAMIDRONATE [Concomitant]
     Active Substance: PAMIDRONATE DISODIUM
     Indication: METASTASES TO BONE
     Route: 065
     Dates: start: 20160419
  13. FENTANYL. [Concomitant]
     Active Substance: FENTANYL
     Indication: TUMOUR PAIN
  14. RATIOGRASTIM [Concomitant]
     Active Substance: FILGRASTIM
     Route: 065
     Dates: start: 20160512, end: 20160512
  15. RATIOGRASTIM [Concomitant]
     Active Substance: FILGRASTIM
     Indication: PROPHYLAXIS
     Route: 065
     Dates: start: 20160422, end: 20160422
  16. NIFEHEXAL [Concomitant]
     Indication: HYPERTENSIVE HEART DISEASE
  17. VERGENTAN [Concomitant]
     Route: 065
     Dates: start: 20160503, end: 20160503
  18. TOREM [Concomitant]
     Active Substance: TORSEMIDE
     Indication: HYPERTENSION
  19. NOVALGIN [Concomitant]
     Active Substance: METAMIZOLE SODIUM
     Indication: MUSCULOSKELETAL CHEST PAIN
  20. CARBOPLATIN. [Suspect]
     Active Substance: CARBOPLATIN
     Indication: NON-SMALL CELL LUNG CANCER
     Dosage: DATE OF MOST RECENT DOSE PRIOR TO EVENT ONSET: 10/MAY/2016 (AT START TIME 14:00) AT 855 MG.
     Route: 042
     Dates: start: 20160419
  21. EFFENTORA [Concomitant]
     Active Substance: FENTANYL CITRATE
     Indication: MUSCULOSKELETAL CHEST PAIN
  22. RATIOGRASTIM [Concomitant]
     Active Substance: FILGRASTIM
     Indication: LEUKOPENIA
     Route: 065
     Dates: start: 20160428, end: 20160428

REACTIONS (1)
  - Cholestasis [Not Recovered/Not Resolved]

NARRATIVE: CASE EVENT DATE: 20160517
